FAERS Safety Report 4878272-9 (Version None)
Quarter: 2006Q1

REPORT INFORMATION
  Report Type: 
  Country: None (occurrence: None)
  Receive Date: 20060111
  Receipt Date: 20050602
  Transmission Date: 20060701
  Serious: Yes (Hospitalization, Disabling)
  Sender: FDA-Public Use
  Company Number: US-MERCK-0506USA00876

PATIENT
  Age: 46 Year
  Sex: Male
  Weight: 66 kg

DRUGS (5)
  1. VIOXX [Suspect]
     Indication: PAIN MANAGEMENT
     Route: 048
     Dates: start: 20020917, end: 20040828
  2. ACYCLOVIR [Concomitant]
     Route: 065
  3. MECLIZINE [Concomitant]
     Route: 065
  4. VERAPAMIL [Concomitant]
     Route: 065
  5. XANAX [Concomitant]
     Route: 065

REACTIONS (5)
  - BASILAR MIGRAINE [None]
  - CEREBROVASCULAR ACCIDENT [None]
  - HEADACHE [None]
  - MITRAL VALVE DISEASE [None]
  - VERTEBRAL ARTERY THROMBOSIS [None]
